FAERS Safety Report 9757305 (Version 1)
Quarter: 2013Q4

REPORT INFORMATION
  Report Type: Spontaneous
  Country: IT (occurrence: IT)
  Receive Date: 20131214
  Receipt Date: 20131214
  Transmission Date: 20140711
  Serious: Yes (Hospitalization)
  Sender: FDA-Public Use
  Company Number: IT-ROCHE-1319917

PATIENT
  Age: 62 Year
  Sex: Male
  Weight: 60 kg

DRUGS (3)
  1. AVASTIN [Suspect]
     Indication: RECTOSIGMOID CANCER
     Route: 042
     Dates: start: 20130902, end: 20131001
  2. OXALIPLATIN [Concomitant]
     Route: 065
  3. FLUOROURACILE TEVA [Concomitant]
     Route: 065

REACTIONS (1)
  - Enteritis [Recovered/Resolved]
